FAERS Safety Report 5099626-4 (Version None)
Quarter: 2006Q3

REPORT INFORMATION
  Report Type: 
  Country: None (occurrence: None)
  Receive Date: 20060906
  Receipt Date: 20060823
  Transmission Date: 20061208
  Serious: Yes (Death, Other)
  Sender: FDA-Public Use
  Company Number: 2006098926

PATIENT
  Age: 76 Year
  Sex: Male

DRUGS (1)
  1. ZYVOX [Suspect]
     Indication: PNEUMONIA STAPHYLOCOCCAL
     Dosage: 1200 MG , INTRAVENOUS
     Route: 042
     Dates: start: 20060729, end: 20060801

REACTIONS (1)
  - DISSEMINATED INTRAVASCULAR COAGULATION [None]
